FAERS Safety Report 26168241 (Version 1)
Quarter: 2025Q4

REPORT INFORMATION
  Report Type: Spontaneous
  Country: US (occurrence: US)
  Receive Date: 20251217
  Receipt Date: 20251217
  Transmission Date: 20260118
  Serious: No
  Sender: STALLERGENES
  Company Number: US-STALCOR-2025-AER-01074

PATIENT
  Sex: Female

DRUGS (15)
  1. BLUE CRAB [Suspect]
     Active Substance: BLUE CRAB
     Indication: Product used for unknown indication
  2. OYSTER [Suspect]
     Active Substance: OYSTER, UNSPECIFIED
     Indication: Product used for unknown indication
  3. NORTHERN BROWN SHRIMP [Suspect]
     Active Substance: NORTHERN BROWN SHRIMP
     Indication: Product used for unknown indication
  4. LOBSTER [Suspect]
     Active Substance: LOBSTER, UNSPECIFIED
     Indication: Product used for unknown indication
  5. SCALLOP [Suspect]
     Active Substance: SCALLOP, UNSPECIFIED
     Indication: Product used for unknown indication
  6. CLAM [Suspect]
     Active Substance: QUAHOG, UNSPECIFIED
     Indication: Product used for unknown indication
  7. TUNA [Concomitant]
     Active Substance: TUNA, UNSPECIFIED
     Route: 058
  8. TROUT [Concomitant]
     Active Substance: TROUT, UNSPECIFIED
     Indication: Product used for unknown indication
  9. SALMON [Concomitant]
     Active Substance: SALMON, UNSPECIFIED
     Indication: Product used for unknown indication
  10. PERCH [Concomitant]
     Active Substance: PERCH, UNSPECIFIED
     Indication: Product used for unknown indication
  11. MACKEREL [Concomitant]
     Active Substance: MACKEREL, UNSPECIFIED
     Indication: Product used for unknown indication
  12. FLOUNDER [Concomitant]
     Active Substance: FLOUNDER
     Indication: Product used for unknown indication
  13. COD [Concomitant]
     Active Substance: ATLANTIC COD
     Indication: Product used for unknown indication
  14. CATFISH [Concomitant]
     Indication: Product used for unknown indication
  15. BASS [Concomitant]
     Indication: Product used for unknown indication

REACTIONS (2)
  - Drug ineffective [Unknown]
  - No adverse event [Unknown]
